FAERS Safety Report 4359029-4 (Version None)
Quarter: 2004Q2

REPORT INFORMATION
  Report Type: 
  Country: None (occurrence: None)
  Receive Date: 20040517
  Receipt Date: 20040512
  Transmission Date: 20050107
  Serious: Yes (Death)
  Sender: FDA-Public Use
  Company Number: JPKYO-S-20040020

PATIENT
  Sex: Male

DRUGS (4)
  1. NAVELBINE [Suspect]
     Indication: LUNG ADENOCARCINOMA
     Route: 042
  2. GEMZAR [Suspect]
     Indication: LUNG ADENOCARCINOMA
  3. PACLITAXEL [Concomitant]
  4. CARBOPLATIN [Concomitant]

REACTIONS (1)
  - PNEUMONITIS [None]
